FAERS Safety Report 7797349-1 (Version None)
Quarter: 2011Q4

REPORT INFORMATION
  Report Type: 
  Country: None (occurrence: None)
  Receive Date: 20111005
  Receipt Date: 20110927
  Transmission Date: 20120403
  Serious: Yes (Other)
  Sender: FDA-Public Use
  Company Number: JP-B.I. PHARMACEUTICALS,INC./RIDGEFIELD-2011-BP-23048NB

PATIENT
  Age: 85 Year
  Sex: Male

DRUGS (5)
  1. PRADAXA [Suspect]
     Indication: ATRIAL FIBRILLATION
     Dosage: 220 MG
     Route: 048
     Dates: start: 20110613, end: 20110812
  2. LANIRAPID [Concomitant]
     Dosage: 0.75
     Route: 048
  3. METHYCOBAL [Concomitant]
     Dosage: 1.5 G
     Route: 048
  4. VERAPAMIL HCL [Concomitant]
     Dosage: 60 MG
     Route: 048
  5. PIMENOL [Concomitant]
     Dosage: 150 MG
     Route: 048

REACTIONS (1)
  - DERMATITIS EXFOLIATIVE [None]
